FAERS Safety Report 10226421 (Version 1)
Quarter: 2014Q2

REPORT INFORMATION
  Report Type: Spontaneous
  Country: US (occurrence: US)
  Receive Date: 20140609
  Receipt Date: 20140609
  Transmission Date: 20141212
  Serious: No
  Sender: FDA-Public Use
  Company Number: US-AMGEN INC.-USASP2013046922

PATIENT
  Age: 93 Year
  Sex: Female
  Weight: 63.49 kg

DRUGS (1)
  1. PROCRIT [Suspect]
     Indication: ANAEMIA
     Dosage: 5000 UNIT, UNK
     Route: 058
     Dates: start: 20130620

REACTIONS (1)
  - Medication error [Recovered/Resolved]
